FAERS Safety Report 5137171-8 (Version None)
Quarter: 2006Q4

REPORT INFORMATION
  Report Type: 
  Country: None (occurrence: None)
  Receive Date: 20061030
  Receipt Date: 20050907
  Transmission Date: 20070319
  Serious: No
  Sender: FDA-Public Use
  Company Number: US-GLAXOSMITHKLINE-A0573303A

PATIENT
  Age: 6 Year
  Sex: Female
  Weight: 29.1 kg

DRUGS (2)
  1. ADVAIR HFA [Suspect]
     Indication: ASTHMA
     Dosage: 1PUFF TWICE PER DAY
     Route: 055
     Dates: start: 20050310, end: 20050820
  2. NASONEX [Concomitant]
     Dosage: 2SPR PER DAY
     Route: 045
     Dates: start: 20050105

REACTIONS (1)
  - BLOOD HOMOCYSTEINE INCREASED [None]
